FAERS Safety Report 7437254-3 (Version None)
Quarter: 2011Q2

REPORT INFORMATION
  Report Type: 
  Country: None (occurrence: None)
  Receive Date: 20110426
  Receipt Date: 20110414
  Transmission Date: 20111010
  Serious: Yes (Other)
  Sender: FDA-Public Use
  Company Number: US-BRISTOL-MYERS SQUIBB COMPANY-15674922

PATIENT
  Age: 54 Year
  Sex: Female
  Weight: 103 kg

DRUGS (15)
  1. ATENOLOL [Concomitant]
  2. LASIX [Concomitant]
  3. LIPITOR [Concomitant]
  4. MAGNESIUM [Concomitant]
  5. ACETAMINOPHEN [Concomitant]
     Dosage: PM
  6. POTASSIUM [Concomitant]
  7. MOBIC [Concomitant]
  8. MULTI-VITAMIN [Concomitant]
  9. ORENCIA [Suspect]
     Dosage: : ORENCIA ONE INFUSION A MONTH
     Dates: start: 20060101
  10. NIACIN [Concomitant]
  11. PROGESTERONE [Concomitant]
  12. LUNESTA [Concomitant]
  13. PLAQUENIL [Concomitant]
  14. ALLEGRA D 24 HOUR [Concomitant]
  15. CALCIUM [Concomitant]

REACTIONS (1)
  - MULTIPLE SCLEROSIS [None]
